FAERS Safety Report 5503875-8 (Version None)
Quarter: 2007Q4

REPORT INFORMATION
  Report Type: 
  Country: None (occurrence: None)
  Receive Date: 20071101
  Receipt Date: 20071031
  Transmission Date: 20080405
  Serious: Yes (Hospitalization)
  Sender: FDA-Public Use
  Company Number: US-BAYER-200614268BWH

PATIENT
  Age: 57 Year
  Sex: Male

DRUGS (7)
  1. DTIC-DOME [Suspect]
     Indication: METASTATIC MALIGNANT MELANOMA
     Route: 042
     Dates: start: 20030630, end: 20030703
  2. DTIC-DOME [Suspect]
     Route: 042
     Dates: start: 20030728, end: 20030801
  3. DTIC-DOME [Suspect]
     Route: 042
     Dates: start: 20030825, end: 20030827
  4. MDX - 010 (BMS734016) - (IPILIMUMAB) [Suspect]
     Indication: METASTATIC MALIGNANT MELANOMA
     Route: 042
     Dates: start: 20030728, end: 20030728
  5. MDX - 010 (BMS734016) - (IPILIMUMAB) [Suspect]
     Route: 042
     Dates: start: 20030825, end: 20030825
  6. MDX - 010 (BMS734016) - (IPILIMUMAB) [Suspect]
     Route: 042
     Dates: start: 20030630, end: 20030630
  7. LOTENSIN [Concomitant]

REACTIONS (2)
  - DEHYDRATION [None]
  - SYNCOPE [None]
